FAERS Safety Report 9209849 (Version 1)
Quarter: 2013Q1

REPORT INFORMATION
  Report Type: Spontaneous
  Country: US (occurrence: US)
  Receive Date: 20120820
  Receipt Date: 20120820
  Transmission Date: 20140127
  Serious: No
  Sender: FDA-Public Use
  Company Number: 1000037182

PATIENT
  Age: 78 Year
  Sex: Female

DRUGS (8)
  1. VIIBRYD [Suspect]
     Indication: DEPRESSION
     Route: 048
     Dates: start: 201206, end: 201207
  2. PRIMIDONE (PRIMIDONE)(PRIMIDONE) [Concomitant]
  3. ISOSORBIDE (ISOSORBIDE)(ISOSORBIDE) [Concomitant]
  4. PROPRANOLOL (PROPRANOLOL)(PROPRANOLOL) [Concomitant]
  5. OMEPRAZOLE (OMEPRAZOLE)(OMEPRAZOLE) [Concomitant]
  6. AMLODIPINE (AMLODIPINE)(AMLODIPINE) [Concomitant]
  7. SIMVASTATIN (SIMVASTATIN)(SIMVASTATIN) [Concomitant]
  8. IBUPROFEN  (IBUPROFEN) [Concomitant]

REACTIONS (1)
  - Abnormal dreams [None]
